FAERS Safety Report 20797264 (Version 6)
Quarter: 2023Q2

REPORT INFORMATION
  Report Type: Report from Study
  Country: CH (occurrence: CH)
  Receive Date: 20220506
  Receipt Date: 20230511
  Transmission Date: 20230722
  Serious: Yes (Other)
  Sender: FDA-Public Use
  Company Number: CH-BoehringerIngelheim-2019-BI-004037

PATIENT
  Sex: Male
  Weight: 79 kg

DRUGS (4)
  1. OFEV [Suspect]
     Active Substance: NINTEDANIB
     Indication: Interstitial lung disease
     Route: 048
     Dates: start: 20190118
  2. OFEV [Suspect]
     Active Substance: NINTEDANIB
     Indication: Idiopathic pulmonary fibrosis
  3. JARDIANCE [Suspect]
     Active Substance: EMPAGLIFLOZIN
     Indication: Diabetes mellitus
  4. JARDIANCE [Suspect]
     Active Substance: EMPAGLIFLOZIN

REACTIONS (22)
  - Pancreatitis [Recovered/Resolved]
  - Total lung capacity decreased [Not Recovered/Not Resolved]
  - Idiopathic pulmonary fibrosis [Not Recovered/Not Resolved]
  - Dyspnoea exertional [Not Recovered/Not Resolved]
  - Cough [Not Recovered/Not Resolved]
  - Fatigue [Not Recovered/Not Resolved]
  - Somnolence [Not Recovered/Not Resolved]
  - Total lung capacity decreased [Not Recovered/Not Resolved]
  - Diarrhoea [Recovered/Resolved]
  - Weight decreased [Recovered/Resolved]
  - Weight decreased [Recovered/Resolved]
  - Diarrhoea [Recovered/Resolved]
  - Faeces soft [Recovered/Resolved]
  - Faeces soft [Not Recovered/Not Resolved]
  - Fatigue [Recovered/Resolved]
  - Influenza [Recovered/Resolved]
  - Urinary incontinence [Recovered/Resolved]
  - COVID-19 [Recovered/Resolved]
  - Red blood cell count increased [Not Recovered/Not Resolved]
  - Infection [Not Recovered/Not Resolved]
  - Decreased appetite [Recovered/Resolved]
  - Diarrhoea [Recovered/Resolved]
